FAERS Safety Report 8786272 (Version 2)
Quarter: 2012Q4

REPORT INFORMATION
  Report Type: Report from Study
  Country: FR (occurrence: FR)
  Receive Date: 20120914
  Receipt Date: 20120914
  Transmission Date: 20130627
  Serious: Yes (Hospitalization)
  Sender: FDA-Public Use
  Company Number: FR-VERTEX PHARMACEUTICAL INC.-AE-2011-002602

PATIENT
  Age: 52 Year
  Sex: Female
  Weight: 73 kg

DRUGS (18)
  1. VX-950 [Suspect]
     Indication: HEPATITIS C
     Dosage: 750 mg, UNK
     Dates: start: 20110828, end: 20111102
  2. MOSCONTIN [Interacting]
     Indication: PRODUCT USED FOR UNKNOWN INDICATION
     Route: 048
     Dates: start: 20100618
  3. MORPHINE SULFATE [Interacting]
     Dosage: UNK
     Route: 048
  4. SERESTA [Interacting]
     Indication: PRODUCT USED FOR UNKNOWN INDICATION
     Route: 048
     Dates: start: 20091203
  5. OXAZEPAM [Interacting]
     Route: 048
  6. COPEGUS [Concomitant]
     Indication: HEPATITIS C
     Route: 048
     Dates: start: 20110712
  7. PEGASYS [Concomitant]
     Indication: HEPATITIS C
     Route: 058
     Dates: start: 20110712
  8. NEORECORMON [Concomitant]
     Indication: HAEMOGLOBIN DECREASED
     Dates: start: 20111004
  9. LEVOTHYROX [Concomitant]
     Dates: start: 20110308
  10. SEROPLEX [Concomitant]
     Dates: start: 20100112
  11. TRUVADA [Concomitant]
     Indication: HIV INFECTION
     Route: 048
     Dates: start: 20070716
  12. REYATAZ [Concomitant]
     Indication: HIV INFECTION
     Route: 048
     Dates: start: 20070716
  13. DOLIPRANE [Concomitant]
  14. BACTRIM [Concomitant]
  15. VENTOLIN [Concomitant]
  16. FORTIMEL [Concomitant]
  17. MOPRAL [Concomitant]
  18. LASILIX [Concomitant]

REACTIONS (15)
  - Respiratory failure [Recovered/Resolved]
  - Drug interaction [Recovered/Resolved]
  - Altered state of consciousness [None]
  - Hepatic failure [None]
  - Overdose [None]
  - Withdrawal syndrome [None]
  - Haematotoxicity [None]
  - Drug withdrawal convulsions [None]
  - Malaise [None]
  - Psychomotor skills impaired [None]
  - Somnolence [None]
  - Asterixis [None]
  - Coma [None]
  - Hypercapnia [None]
  - Metabolic alkalosis [None]
